FAERS Safety Report 6163542-7 (Version None)
Quarter: 2009Q2

REPORT INFORMATION
  Report Type: 
  Country: None (occurrence: None)
  Receive Date: 20090420
  Receipt Date: 20080318
  Transmission Date: 20091009
  Serious: Yes (Other)
  Sender: FDA-Public Use
  Company Number: SPV1-2008-00630

PATIENT
  Sex: Male

DRUGS (2)
  1. LIALDA [Suspect]
     Dosage: 4.8 G DAILY, ORAL
     Route: 048
     Dates: start: 20080101, end: 20080301
  2. LYRICA [Concomitant]

REACTIONS (1)
  - PANCREATITIS [None]
